FAERS Safety Report 5371670-9 (Version None)
Quarter: 2007Q2

REPORT INFORMATION
  Report Type: 
  Country: None (occurrence: None)
  Receive Date: 20070625
  Receipt Date: 20070613
  Transmission Date: 20071010
  Serious: Yes (Other)
  Sender: FDA-Public Use
  Company Number: 2007BI012704

PATIENT
  Age: 30 Year
  Sex: Male
  Weight: 95 kg

DRUGS (1)
  1. NATALIZUMAB (NATALIZUMAB) [Suspect]
     Indication: MULTIPLE SCLEROSIS
     Dosage: 300 MG; QM; IV
     Route: 042
     Dates: start: 20070122, end: 20070221

REACTIONS (6)
  - ERYTHEMA [None]
  - HOT FLUSH [None]
  - INFUSION RELATED REACTION [None]
  - MALAISE [None]
  - PRURITUS [None]
  - RASH PUSTULAR [None]
